FAERS Safety Report 8914851 (Version 5)
Quarter: 2013Q1

REPORT INFORMATION
  Report Type: Report from Study
  Country: JP (occurrence: JP)
  Receive Date: 20121116
  Receipt Date: 20130227
  Transmission Date: 20140127
  Serious: Yes (Hospitalization)
  Sender: FDA-Public Use
  Company Number: JP-ABBOTT-12P-087-1005152-00

PATIENT
  Age: 38 Year
  Sex: Female
  Weight: 39 kg

DRUGS (11)
  1. HUMIRA [Suspect]
     Indication: CROHN^S DISEASE
     Route: 058
     Dates: start: 20101203, end: 20101203
  2. HUMIRA [Suspect]
     Dates: start: 20101217, end: 20101217
  3. HUMIRA [Suspect]
     Dates: start: 20101229
  4. PREDNISOLONE [Concomitant]
     Indication: CROHN^S DISEASE
     Dosage: 20 MG DAILY
     Route: 048
     Dates: end: 20110221
  5. METRONIDAZOLE [Concomitant]
     Indication: CROHN^S DISEASE
     Route: 048
  6. ANTIBIOTICS-RESISTANT LACTIC ACID BACTERIAE [Concomitant]
     Indication: CROHN^S DISEASE
     Route: 048
  7. ALBUMIN TANNATE [Concomitant]
     Indication: CROHN^S DISEASE
     Route: 048
  8. POLAPREZINC [Concomitant]
     Indication: PROPHYLAXIS
     Route: 048
  9. FAMOTIDINE [Concomitant]
     Indication: PROPHYLAXIS
     Route: 048
  10. NICORANDIL [Concomitant]
     Indication: PRODUCT USED FOR UNKNOWN INDICATION
  11. WARFARIN POTASSIUM [Concomitant]
     Indication: PRODUCT USED FOR UNKNOWN INDICATION
     Route: 048

REACTIONS (2)
  - Cardiac failure [Recovering/Resolving]
  - Pyrexia [Unknown]
